FAERS Safety Report 5353975-0 (Version None)
Quarter: 2007Q2

REPORT INFORMATION
  Report Type: 
  Country: None (occurrence: None)
  Receive Date: 20070521
  Receipt Date: 20070124
  Transmission Date: 20071010
  Serious: No
  Sender: FDA-Public Use
  Company Number: WAES 0701USA04351

PATIENT
  Age: 59 Year
  Sex: Male

DRUGS (3)
  1. JANUVIA [Suspect]
     Dosage: PO
     Route: 048
  2. LYRICA [Concomitant]
  3. RITALIN [Concomitant]

REACTIONS (3)
  - CHEST PAIN [None]
  - DRUG DOSE OMISSION [None]
  - URINE COLOUR ABNORMAL [None]
